FAERS Safety Report 9154998 (Version 1)
Quarter: 2013Q1

REPORT INFORMATION
  Report Type: Spontaneous
  Country: US (occurrence: None)
  Receive Date: 20130307
  Receipt Date: 20130307
  Transmission Date: 20140127
  Serious: No
  Sender: FDA-Public Use
  Company Number: None

PATIENT
  Sex: Male
  Weight: 83.92 kg

DRUGS (1)
  1. ESCITALOPRAM 10MG AUROBIUDO PHARMA [Suspect]
     Route: 048
     Dates: start: 201211, end: 201212

REACTIONS (4)
  - Anxiety [None]
  - Depressed mood [None]
  - Product substitution issue [None]
  - Disease recurrence [None]
